FAERS Safety Report 25551294 (Version 1)
Quarter: 2025Q3

REPORT INFORMATION
  Report Type: Spontaneous
  Country: CA (occurrence: CA)
  Receive Date: 20250714
  Receipt Date: 20250714
  Transmission Date: 20251020
  Serious: Yes (Hospitalization)
  Sender: MYLAN
  Company Number: CA-MYLANLABS-2025M1057850

PATIENT
  Age: 62 Year
  Sex: Female
  Weight: 52 kg

DRUGS (144)
  1. DILANTIN [Suspect]
     Active Substance: PHENYTOIN
     Indication: Epilepsy
     Dosage: 150 MILLIGRAM, BID (1 EVERY 12 HOURS)
  2. DILANTIN [Suspect]
     Active Substance: PHENYTOIN
     Dosage: 150 MILLIGRAM, BID (1 EVERY 12 HOURS)
     Route: 042
  3. DILANTIN [Suspect]
     Active Substance: PHENYTOIN
     Dosage: 150 MILLIGRAM, BID (1 EVERY 12 HOURS)
     Route: 042
  4. DILANTIN [Suspect]
     Active Substance: PHENYTOIN
     Dosage: 150 MILLIGRAM, BID (1 EVERY 12 HOURS)
  5. ACETAMINOPHEN [Concomitant]
     Active Substance: ACETAMINOPHEN
  6. ACETAMINOPHEN [Concomitant]
     Active Substance: ACETAMINOPHEN
     Route: 065
  7. ACETAMINOPHEN [Concomitant]
     Active Substance: ACETAMINOPHEN
     Route: 065
  8. ACETAMINOPHEN [Concomitant]
     Active Substance: ACETAMINOPHEN
  9. ASPIRIN [Concomitant]
     Active Substance: ASPIRIN
  10. ASPIRIN [Concomitant]
     Active Substance: ASPIRIN
     Route: 065
  11. ASPIRIN [Concomitant]
     Active Substance: ASPIRIN
     Route: 065
  12. ASPIRIN [Concomitant]
     Active Substance: ASPIRIN
  13. AMLODIPINE [Concomitant]
     Active Substance: AMLODIPINE BESYLATE
  14. AMLODIPINE [Concomitant]
     Active Substance: AMLODIPINE BESYLATE
     Route: 065
  15. AMLODIPINE [Concomitant]
     Active Substance: AMLODIPINE BESYLATE
     Route: 065
  16. AMLODIPINE [Concomitant]
     Active Substance: AMLODIPINE BESYLATE
  17. BETAHISTINE [Concomitant]
     Active Substance: BETAHISTINE
  18. BETAHISTINE [Concomitant]
     Active Substance: BETAHISTINE
     Route: 065
  19. BETAHISTINE [Concomitant]
     Active Substance: BETAHISTINE
     Route: 065
  20. BETAHISTINE [Concomitant]
     Active Substance: BETAHISTINE
  21. CALCIUM GLUCONATE [Concomitant]
     Active Substance: CALCIUM GLUCONATE
  22. CALCIUM GLUCONATE [Concomitant]
     Active Substance: CALCIUM GLUCONATE
     Route: 065
  23. CALCIUM GLUCONATE [Concomitant]
     Active Substance: CALCIUM GLUCONATE
     Route: 065
  24. CALCIUM GLUCONATE [Concomitant]
     Active Substance: CALCIUM GLUCONATE
  25. CHOLECALCIFEROL [Concomitant]
     Active Substance: CHOLECALCIFEROL
  26. CHOLECALCIFEROL [Concomitant]
     Active Substance: CHOLECALCIFEROL
     Route: 065
  27. CHOLECALCIFEROL [Concomitant]
     Active Substance: CHOLECALCIFEROL
     Route: 065
  28. CHOLECALCIFEROL [Concomitant]
     Active Substance: CHOLECALCIFEROL
  29. CITALOPRAM [Concomitant]
     Active Substance: CITALOPRAM
  30. CITALOPRAM [Concomitant]
     Active Substance: CITALOPRAM
     Route: 065
  31. CITALOPRAM [Concomitant]
     Active Substance: CITALOPRAM
     Route: 065
  32. CITALOPRAM [Concomitant]
     Active Substance: CITALOPRAM
  33. CLOBAZAM [Concomitant]
     Active Substance: CLOBAZAM
  34. CLOBAZAM [Concomitant]
     Active Substance: CLOBAZAM
     Route: 065
  35. CLOBAZAM [Concomitant]
     Active Substance: CLOBAZAM
     Route: 065
  36. CLOBAZAM [Concomitant]
     Active Substance: CLOBAZAM
  37. PERINDOPRIL [Concomitant]
     Active Substance: PERINDOPRIL
  38. PERINDOPRIL [Concomitant]
     Active Substance: PERINDOPRIL
     Route: 065
  39. PERINDOPRIL [Concomitant]
     Active Substance: PERINDOPRIL
     Route: 065
  40. PERINDOPRIL [Concomitant]
     Active Substance: PERINDOPRIL
  41. DENOSUMAB [Concomitant]
     Active Substance: DENOSUMAB
  42. DENOSUMAB [Concomitant]
     Active Substance: DENOSUMAB
     Route: 065
  43. DENOSUMAB [Concomitant]
     Active Substance: DENOSUMAB
     Route: 065
  44. DENOSUMAB [Concomitant]
     Active Substance: DENOSUMAB
  45. DILTIAZEM [Concomitant]
     Active Substance: DILTIAZEM
  46. DILTIAZEM [Concomitant]
     Active Substance: DILTIAZEM
     Route: 065
  47. DILTIAZEM [Concomitant]
     Active Substance: DILTIAZEM
     Route: 065
  48. DILTIAZEM [Concomitant]
     Active Substance: DILTIAZEM
  49. DOCUSATE SODIUM [Concomitant]
     Active Substance: DOCUSATE SODIUM
  50. DOCUSATE SODIUM [Concomitant]
     Active Substance: DOCUSATE SODIUM
     Route: 065
  51. DOCUSATE SODIUM [Concomitant]
     Active Substance: DOCUSATE SODIUM
     Route: 065
  52. DOCUSATE SODIUM [Concomitant]
     Active Substance: DOCUSATE SODIUM
  53. DOXAZOSIN [Concomitant]
     Active Substance: DOXAZOSIN MESYLATE
  54. DOXAZOSIN [Concomitant]
     Active Substance: DOXAZOSIN MESYLATE
     Route: 065
  55. DOXAZOSIN [Concomitant]
     Active Substance: DOXAZOSIN MESYLATE
     Route: 065
  56. DOXAZOSIN [Concomitant]
     Active Substance: DOXAZOSIN MESYLATE
  57. FENTANYL [Concomitant]
     Active Substance: FENTANYL
  58. FENTANYL [Concomitant]
     Active Substance: FENTANYL
     Route: 065
  59. FENTANYL [Concomitant]
     Active Substance: FENTANYL
     Route: 065
  60. FENTANYL [Concomitant]
     Active Substance: FENTANYL
  61. FRAGMIN [Concomitant]
     Active Substance: DALTEPARIN SODIUM
  62. FRAGMIN [Concomitant]
     Active Substance: DALTEPARIN SODIUM
     Route: 065
  63. FRAGMIN [Concomitant]
     Active Substance: DALTEPARIN SODIUM
     Route: 065
  64. FRAGMIN [Concomitant]
     Active Substance: DALTEPARIN SODIUM
  65. FUROSEMIDE [Concomitant]
     Active Substance: FUROSEMIDE
  66. FUROSEMIDE [Concomitant]
     Active Substance: FUROSEMIDE
     Route: 065
  67. FUROSEMIDE [Concomitant]
     Active Substance: FUROSEMIDE
     Route: 065
  68. FUROSEMIDE [Concomitant]
     Active Substance: FUROSEMIDE
  69. GABAPENTIN [Concomitant]
     Active Substance: GABAPENTIN
  70. GABAPENTIN [Concomitant]
     Active Substance: GABAPENTIN
     Route: 065
  71. GABAPENTIN [Concomitant]
     Active Substance: GABAPENTIN
     Route: 065
  72. GABAPENTIN [Concomitant]
     Active Substance: GABAPENTIN
  73. HEPARIN SODIUM [Concomitant]
     Active Substance: HEPARIN SODIUM
  74. HEPARIN SODIUM [Concomitant]
     Active Substance: HEPARIN SODIUM
     Route: 065
  75. HEPARIN SODIUM [Concomitant]
     Active Substance: HEPARIN SODIUM
     Route: 065
  76. HEPARIN SODIUM [Concomitant]
     Active Substance: HEPARIN SODIUM
  77. HYDRALAZINE [Concomitant]
     Active Substance: HYDRALAZINE HYDROCHLORIDE
  78. HYDRALAZINE [Concomitant]
     Active Substance: HYDRALAZINE HYDROCHLORIDE
     Route: 065
  79. HYDRALAZINE [Concomitant]
     Active Substance: HYDRALAZINE HYDROCHLORIDE
     Route: 065
  80. HYDRALAZINE [Concomitant]
     Active Substance: HYDRALAZINE HYDROCHLORIDE
  81. HYDROMORPHONE [Concomitant]
     Active Substance: HYDROMORPHONE
  82. HYDROMORPHONE [Concomitant]
     Active Substance: HYDROMORPHONE
     Route: 065
  83. HYDROMORPHONE [Concomitant]
     Active Substance: HYDROMORPHONE
     Route: 065
  84. HYDROMORPHONE [Concomitant]
     Active Substance: HYDROMORPHONE
  85. LABETALOL [Concomitant]
     Active Substance: LABETALOL
  86. LABETALOL [Concomitant]
     Active Substance: LABETALOL
     Route: 065
  87. LABETALOL [Concomitant]
     Active Substance: LABETALOL
     Route: 065
  88. LABETALOL [Concomitant]
     Active Substance: LABETALOL
  89. LAMOTRIGINE [Concomitant]
     Active Substance: LAMOTRIGINE
  90. LAMOTRIGINE [Concomitant]
     Active Substance: LAMOTRIGINE
     Route: 065
  91. LAMOTRIGINE [Concomitant]
     Active Substance: LAMOTRIGINE
     Route: 065
  92. LAMOTRIGINE [Concomitant]
     Active Substance: LAMOTRIGINE
  93. LORAZEPAM [Concomitant]
     Active Substance: LORAZEPAM
  94. LORAZEPAM [Concomitant]
     Active Substance: LORAZEPAM
     Route: 065
  95. LORAZEPAM [Concomitant]
     Active Substance: LORAZEPAM
     Route: 065
  96. LORAZEPAM [Concomitant]
     Active Substance: LORAZEPAM
  97. METHYLPREDNISOLONE [Concomitant]
     Active Substance: METHYLPREDNISOLONE
  98. METHYLPREDNISOLONE [Concomitant]
     Active Substance: METHYLPREDNISOLONE
     Route: 065
  99. METHYLPREDNISOLONE [Concomitant]
     Active Substance: METHYLPREDNISOLONE
     Route: 065
  100. METHYLPREDNISOLONE [Concomitant]
     Active Substance: METHYLPREDNISOLONE
  101. METOLAZONE [Concomitant]
     Active Substance: METOLAZONE
  102. METOLAZONE [Concomitant]
     Active Substance: METOLAZONE
     Route: 065
  103. METOLAZONE [Concomitant]
     Active Substance: METOLAZONE
     Route: 065
  104. METOLAZONE [Concomitant]
     Active Substance: METOLAZONE
  105. MIDAZOLAM [Concomitant]
     Active Substance: MIDAZOLAM
  106. MIDAZOLAM [Concomitant]
     Active Substance: MIDAZOLAM
     Route: 065
  107. MIDAZOLAM [Concomitant]
     Active Substance: MIDAZOLAM
     Route: 065
  108. MIDAZOLAM [Concomitant]
     Active Substance: MIDAZOLAM
  109. NOREPINEPHRINE [Concomitant]
     Active Substance: NOREPINEPHRINE
  110. NOREPINEPHRINE [Concomitant]
     Active Substance: NOREPINEPHRINE
     Route: 065
  111. NOREPINEPHRINE [Concomitant]
     Active Substance: NOREPINEPHRINE
     Route: 065
  112. NOREPINEPHRINE [Concomitant]
     Active Substance: NOREPINEPHRINE
  113. PANTOPRAZOLE [Concomitant]
     Active Substance: PANTOPRAZOLE
  114. PANTOPRAZOLE [Concomitant]
     Active Substance: PANTOPRAZOLE
     Route: 065
  115. PANTOPRAZOLE [Concomitant]
     Active Substance: PANTOPRAZOLE
     Route: 065
  116. PANTOPRAZOLE [Concomitant]
     Active Substance: PANTOPRAZOLE
  117. PHENOBARBITAL [Concomitant]
     Active Substance: PHENOBARBITAL
  118. PHENOBARBITAL [Concomitant]
     Active Substance: PHENOBARBITAL
     Route: 065
  119. PHENOBARBITAL [Concomitant]
     Active Substance: PHENOBARBITAL
     Route: 065
  120. PHENOBARBITAL [Concomitant]
     Active Substance: PHENOBARBITAL
  121. POLYETHYLENE GLYCOL [Concomitant]
     Active Substance: POLYETHYLENE GLYCOL
  122. POLYETHYLENE GLYCOL [Concomitant]
     Active Substance: POLYETHYLENE GLYCOL
     Route: 065
  123. POLYETHYLENE GLYCOL [Concomitant]
     Active Substance: POLYETHYLENE GLYCOL
     Route: 065
  124. POLYETHYLENE GLYCOL [Concomitant]
     Active Substance: POLYETHYLENE GLYCOL
  125. PROPOFOL [Concomitant]
     Active Substance: PROPOFOL
  126. PROPOFOL [Concomitant]
     Active Substance: PROPOFOL
     Route: 065
  127. PROPOFOL [Concomitant]
     Active Substance: PROPOFOL
     Route: 065
  128. PROPOFOL [Concomitant]
     Active Substance: PROPOFOL
  129. QUETIAPINE [Concomitant]
     Active Substance: QUETIAPINE
  130. QUETIAPINE [Concomitant]
     Active Substance: QUETIAPINE
     Route: 065
  131. QUETIAPINE [Concomitant]
     Active Substance: QUETIAPINE
     Route: 065
  132. QUETIAPINE [Concomitant]
     Active Substance: QUETIAPINE
  133. RAPAFLO [Concomitant]
     Active Substance: SILODOSIN
  134. RAPAFLO [Concomitant]
     Active Substance: SILODOSIN
     Route: 065
  135. RAPAFLO [Concomitant]
     Active Substance: SILODOSIN
     Route: 065
  136. RAPAFLO [Concomitant]
     Active Substance: SILODOSIN
  137. ROCURONIUM [Concomitant]
     Active Substance: ROCURONIUM BROMIDE
  138. ROCURONIUM [Concomitant]
     Active Substance: ROCURONIUM BROMIDE
     Route: 065
  139. ROCURONIUM [Concomitant]
     Active Substance: ROCURONIUM BROMIDE
     Route: 065
  140. ROCURONIUM [Concomitant]
     Active Substance: ROCURONIUM BROMIDE
  141. VANCOMYCIN [Concomitant]
     Active Substance: VANCOMYCIN
  142. VANCOMYCIN [Concomitant]
     Active Substance: VANCOMYCIN
     Route: 065
  143. VANCOMYCIN [Concomitant]
     Active Substance: VANCOMYCIN
     Route: 065
  144. VANCOMYCIN [Concomitant]
     Active Substance: VANCOMYCIN

REACTIONS (2)
  - Febrile neutropenia [Not Recovered/Not Resolved]
  - Pyelonephritis acute [Not Recovered/Not Resolved]
